FAERS Safety Report 24967518 (Version 1)
Quarter: 2025Q1

REPORT INFORMATION
  Report Type: Spontaneous
  Country: HU (occurrence: HU)
  Receive Date: 20250214
  Receipt Date: 20250214
  Transmission Date: 20250409
  Serious: Yes (Hospitalization)
  Sender: ROCHE
  Company Number: None

PATIENT
  Age: 73 Year
  Sex: Male
  Weight: 67 kg

DRUGS (8)
  1. AVASTIN [Suspect]
     Active Substance: BEVACIZUMAB
     Indication: Hepatocellular carcinoma
     Dosage: 15 MG PER BODY WEIGHT KILOGRAM
     Route: 065
     Dates: start: 20241010, end: 20241124
  2. TECENTRIQ [Suspect]
     Active Substance: ATEZOLIZUMAB
     Indication: Hepatocellular carcinoma
     Route: 058
     Dates: start: 20241010, end: 20241124
  3. BISOPROLOL [Concomitant]
     Active Substance: BISOPROLOL
     Route: 048
  4. Controloc 40 mg gyomornedv-ellen?ll? tabletta [Concomitant]
     Route: 048
  5. Furon 40 mg tabletta [Concomitant]
     Route: 048
  6. Quamatel 40 mg filmtabletta [Concomitant]
     Route: 048
  7. TIAPRIDAL 100 MG TABLETTA [Concomitant]
     Route: 048
  8. Verospiron 50 mg kemeny kapszula [Concomitant]
     Route: 048

REACTIONS (6)
  - Anaemia [Unknown]
  - Gastroenteritis [Recovered/Resolved]
  - Gastrooesophageal reflux disease [Unknown]
  - Duodenal ulcer [Unknown]
  - Vomiting [Unknown]
  - Diarrhoea [Unknown]

NARRATIVE: CASE EVENT DATE: 20241031
